FAERS Safety Report 23231150 (Version 2)
Quarter: 2023Q4

REPORT INFORMATION
  Report Type: Spontaneous
  Country: GB (occurrence: GB)
  Receive Date: 20231127
  Receipt Date: 20231207
  Transmission Date: 20240110
  Serious: Yes (Hospitalization, Other)
  Sender: FDA-Public Use
  Company Number: GB-GILEAD-2023-0644352

PATIENT
  Age: 4 Decade
  Sex: Male

DRUGS (11)
  1. TRUVADA [Suspect]
     Active Substance: EMTRICITABINE\TENOFOVIR DISOPROXIL FUMARATE
     Indication: HIV infection
     Dosage: UNK
     Route: 065
  2. RALTEGRAVIR [Concomitant]
     Active Substance: RALTEGRAVIR
     Indication: Disseminated mycobacterium avium complex infection
  3. RIFABUTIN [Concomitant]
     Active Substance: RIFABUTIN
     Indication: Disseminated mycobacterium avium complex infection
  4. ETHAMBUTOL [Concomitant]
     Active Substance: ETHAMBUTOL HYDROCHLORIDE
     Indication: Disseminated mycobacterium avium complex infection
  5. LINEZOLID [Concomitant]
     Active Substance: LINEZOLID
  6. AZITHROMYCIN [Concomitant]
     Active Substance: AZITHROMYCIN
  7. DORAVIRINE [Concomitant]
     Active Substance: DORAVIRINE
     Dosage: 100 MG, Q
  8. DOLUTEGRAVIR [Concomitant]
     Active Substance: DOLUTEGRAVIR
     Dosage: 50 MG, BID
  9. PREDNISONE [Concomitant]
     Active Substance: PREDNISONE
     Dosage: 1.25 MG/KG
     Route: 048
  10. OCTREOTIDE [Concomitant]
     Active Substance: OCTREOTIDE
     Dosage: 100 MG
  11. TAMOXIFEN [Concomitant]
     Active Substance: TAMOXIFEN
     Dosage: 100 MG

REACTIONS (2)
  - Immune reconstitution inflammatory syndrome [Recovering/Resolving]
  - Mesenteric panniculitis [Unknown]
